FAERS Safety Report 7547903-7 (Version None)
Quarter: 2011Q2

REPORT INFORMATION
  Report Type: 
  Country: None (occurrence: None)
  Receive Date: 20110615
  Receipt Date: 20110607
  Transmission Date: 20111010
  Serious: No
  Sender: FDA-Public Use
  Company Number: US-BIOGENIDEC-2011BI021025

PATIENT
  Age: 50 Year
  Sex: Male

DRUGS (1)
  1. TYSABRI [Suspect]
     Indication: MULTIPLE SCLEROSIS
     Route: 042
     Dates: start: 20110101

REACTIONS (9)
  - FALL [None]
  - LACERATION [None]
  - FACE INJURY [None]
  - WOUND HAEMORRHAGE [None]
  - FOOT FRACTURE [None]
  - HALLUCINATION [None]
  - LIMB INJURY [None]
  - BIPOLAR DISORDER [None]
  - COUGH [None]
